FAERS Safety Report 19860498 (Version 1)
Quarter: 2021Q3

REPORT INFORMATION
  Report Type: Spontaneous
  Country: US (occurrence: US)
  Receive Date: 20210920
  Receipt Date: 20210920
  Transmission Date: 20211014
  Serious: No
  Sender: FDA-Public Use
  Company Number: US-AMNEAL PHARMACEUTICALS-2021-AMRX-02277

PATIENT
  Sex: Female

DRUGS (2)
  1. NORELGESTROMIN/ETHINYL ESTRADIOL TRANSDERMAL SYSTEM [Suspect]
     Active Substance: ETHINYL ESTRADIOL\NORELGESTROMIN
     Indication: PRODUCT USED FOR UNKNOWN INDICATION
     Dosage: UNK
     Route: 062
  2. NORELGESTROMIN/ETHINYL ESTRADIOL TRANSDERMAL SYSTEM [Suspect]
     Active Substance: ETHINYL ESTRADIOL\NORELGESTROMIN
     Dosage: UNK
     Route: 062

REACTIONS (5)
  - Product adhesion issue [Unknown]
  - Application site erythema [Unknown]
  - Intermenstrual bleeding [Unknown]
  - Application site irritation [Unknown]
  - Product substitution issue [Unknown]

NARRATIVE: CASE EVENT DATE: 20210723
